FAERS Safety Report 10081635 (Version 2)
Quarter: 2014Q2

REPORT INFORMATION
  Report Type: Spontaneous
  Country: PT (occurrence: PT)
  Receive Date: 20140416
  Receipt Date: 20140530
  Transmission Date: 20141212
  Serious: Yes (Life-Threatening, Other)
  Sender: FDA-Public Use
  Company Number: PT-B.I. PHARMACEUTICALS,INC./RIDGEFIELD-2014-BI-16838PO

PATIENT
  Age: 68 Year
  Sex: Female
  Weight: 80 kg

DRUGS (13)
  1. TWYNSTA [Suspect]
     Indication: BLOOD PRESSURE INCREASED
     Dosage: 1 ANZ
     Route: 048
     Dates: start: 201307, end: 20140327
  2. PREVENAR 13 [Suspect]
     Indication: IMMUNISATION
     Dosage: 0.5 ML
     Route: 030
     Dates: start: 20140306, end: 20140306
  3. FORMOTEROL [Concomitant]
     Indication: ASTHMA
     Dosage: VIA RESPIRATORY ROUTE
     Route: 050
  4. MIFLONIDE [Concomitant]
     Indication: ASTHMA
     Dosage: VIA RESPIRATORY ROUTE
     Route: 050
  5. VENTILAN [Concomitant]
     Indication: ASTHMA
     Dosage: VIA RESPIRATORY ROUTE
     Route: 050
  6. TEGRETOL [Concomitant]
     Indication: EPILEPSY
     Route: 048
  7. LAMOTRIGINE [Concomitant]
     Indication: EPILEPSY
     Route: 048
  8. NEBILET [Concomitant]
     Indication: BLOOD PRESSURE INCREASED
     Route: 065
  9. NITRADISC [Concomitant]
     Indication: BLOOD PRESSURE INCREASED
     Route: 065
  10. CLOPIDOGREL [Concomitant]
     Indication: BLOOD PRESSURE INCREASED
     Route: 065
  11. PAROXETIN [Concomitant]
     Indication: DEPRESSION
     Route: 048
  12. RIVOTRIL [Concomitant]
     Indication: DEPRESSION
     Route: 048
  13. TRAZODONE [Concomitant]
     Indication: DEPRESSION
     Route: 048

REACTIONS (11)
  - Drug interaction [Unknown]
  - Bronchospasm [Not Recovered/Not Resolved]
  - Laryngeal oedema [Not Recovered/Not Resolved]
  - Cyanosis [Recovered/Resolved]
  - Stridor [Recovered/Resolved]
  - Dyspnoea [Not Recovered/Not Resolved]
  - Rhinorrhoea [Recovered/Resolved]
  - Stomatitis [Recovered/Resolved]
  - Anal fissure [Recovered/Resolved]
  - Nasopharyngitis [Recovered/Resolved]
  - Productive cough [Recovered/Resolved]
